FAERS Safety Report 10600407 (Version 2)
Quarter: 2014Q4

REPORT INFORMATION
  Report Type: Spontaneous
  Country: US (occurrence: US)
  Receive Date: 20141124
  Receipt Date: 20141128
  Transmission Date: 20150529
  Serious: Yes (Death, Other)
  Sender: FDA-Public Use
  Company Number: US-009507513-1411USA009002

PATIENT
  Sex: Male

DRUGS (1)
  1. NOXAFIL [Suspect]
     Active Substance: POSACONAZOLE
     Dosage: 40MG/ML; FIG 300 MG DAILY (7.5 ML)  225 ML
     Route: 048
     Dates: start: 201405

REACTIONS (1)
  - Acute myeloid leukaemia [Fatal]
